FAERS Safety Report 9206943 (Version 1)
Quarter: 2013Q1

REPORT INFORMATION
  Report Type: Spontaneous
  Country: US (occurrence: None)
  Receive Date: 20120713
  Receipt Date: 20120713
  Transmission Date: 20140127
  Serious: No
  Sender: FDA-Public Use
  Company Number: PHEH2012US007897

PATIENT
  Age: 53 Year
  Sex: Female
  Weight: 170 kg

DRUGS (2)
  1. ILARIS [Suspect]
     Indication: CRYOPYRIN ASSOCIATED PERIODIC SYNDROME
     Route: 058
     Dates: start: 20101201
  2. METOPROLOL (METOPROLOL) [Concomitant]

REACTIONS (4)
  - Malaise [None]
  - Peripheral coldness [None]
  - Ocular hyperaemia [None]
  - Eye disorder [None]
